FAERS Safety Report 20553262 (Version 2)
Quarter: 2024Q3

REPORT INFORMATION
  Report Type: Spontaneous
  Country: CO (occurrence: CO)
  Receive Date: 20220304
  Receipt Date: 20240829
  Transmission Date: 20241017
  Serious: Yes (Other)
  Sender: MSN LABORATORIES
  Company Number: CO-MSNLABS-2022MSNLIT00183

PATIENT

DRUGS (1)
  1. MOXIFLOXACIN [Suspect]
     Active Substance: MOXIFLOXACIN
     Indication: Bronchitis
     Route: 048

REACTIONS (12)
  - Glaucoma [Recovered/Resolved]
  - Iris transillumination defect [Recovering/Resolving]
  - Iris atrophy [Unknown]
  - Anisocoria [Unknown]
  - Eye disorder [Unknown]
  - Visual acuity reduced [Recovering/Resolving]
  - Pigment dispersion syndrome [Recovered/Resolved]
  - Conjunctival hyperaemia [Unknown]
  - Photophobia [Unknown]
  - Eye pain [Unknown]
  - Mydriasis [Unknown]
  - Vision blurred [Recovering/Resolving]
